FAERS Safety Report 8414861-2 (Version None)
Quarter: 2012Q2

REPORT INFORMATION
  Report Type: 
  Country: None (occurrence: None)
  Receive Date: 20120606
  Receipt Date: 20120530
  Transmission Date: 20120825
  Serious: No
  Sender: FDA-Public Use
  Company Number: US-ASTRAZENECA-2011SE41445

PATIENT
  Age: 53 Year
  Sex: Female

DRUGS (9)
  1. NEXIUM [Suspect]
     Indication: GASTROOESOPHAGEAL REFLUX DISEASE
     Dosage: EVERYDAY
     Route: 048
     Dates: end: 20110401
  2. GABAPENTIN [Concomitant]
     Indication: NERVE INJURY
  3. ALKA-SELTZER [Concomitant]
  4. TIZANIDINE [Concomitant]
     Indication: MUSCLE SPASMS
  5. HYDROCODONE [Concomitant]
     Indication: PAIN
  6. LITHIUM [Concomitant]
  7. NEXIUM [Suspect]
     Route: 048
     Dates: start: 20020101, end: 20110101
  8. LIVOXIL [Concomitant]
     Indication: THYROID DISORDER
  9. ZANTAC [Concomitant]

REACTIONS (8)
  - BONE DENSITY DECREASED [None]
  - PAIN [None]
  - DEPRESSION [None]
  - LOWER LIMB FRACTURE [None]
  - EMOTIONAL DISTRESS [None]
  - OSTEOPOROSIS [None]
  - OSTEOPENIA [None]
  - ANKLE FRACTURE [None]
